FAERS Safety Report 13630743 (Version 1)
Quarter: 2017Q2

REPORT INFORMATION
  Report Type: Spontaneous
  Country: US (occurrence: US)
  Receive Date: 20170531
  Receipt Date: 20170531
  Transmission Date: 20170830
  Serious: No
  Sender: FDA-Public Use
  Company Number: US-ASTELLAS-1326202

PATIENT
  Sex: Female

DRUGS (8)
  1. TARCEVA [Suspect]
     Active Substance: ERLOTINIB HYDROCHLORIDE
     Indication: LUNG NEOPLASM MALIGNANT
     Route: 048
     Dates: start: 20131121
  2. LISINOPRIL. [Concomitant]
     Active Substance: LISINOPRIL
  3. TARCEVA [Suspect]
     Active Substance: ERLOTINIB HYDROCHLORIDE
     Indication: BONE CANCER
  4. TARCEVA [Suspect]
     Active Substance: ERLOTINIB HYDROCHLORIDE
     Indication: METASTASES TO BONE MARROW
  5. KEPPRA [Concomitant]
     Active Substance: LEVETIRACETAM
  6. MORPHINE [Concomitant]
     Active Substance: MORPHINE
  7. AMLODIPINE [Concomitant]
     Active Substance: AMLODIPINE BESYLATE
  8. SODIUM CHLORIDE. [Concomitant]
     Active Substance: SODIUM CHLORIDE

REACTIONS (3)
  - Gastrointestinal disorder [Unknown]
  - Diarrhoea [Unknown]
  - Rash [Unknown]
